FAERS Safety Report 16311635 (Version 2)
Quarter: 2019Q3

REPORT INFORMATION
  Report Type: Report from Study
  Country: US (occurrence: US)
  Receive Date: 20190514
  Receipt Date: 20190722
  Transmission Date: 20191004
  Serious: Yes (Other)
  Sender: FDA-Public Use
  Company Number: US-009507513-1905USA001114

PATIENT

DRUGS (1)
  1. CEFTOLOZANE SULFATE  (+) TAZOBACTAM SODIUM [Suspect]
     Active Substance: CEFTOLOZANE SULFATE\TAZOBACTAM SODIUM

REACTIONS (5)
  - Off label use [Unknown]
  - Drug ineffective [Unknown]
  - Drug abuse [Unknown]
  - Medication error [Unknown]
  - Product administration error [Unknown]

NARRATIVE: CASE EVENT DATE: 20180404
